FAERS Safety Report 21841970 (Version 1)
Quarter: 2023Q1

REPORT INFORMATION
  Report Type: Spontaneous
  Country: ES (occurrence: ES)
  Receive Date: 20230110
  Receipt Date: 20230110
  Transmission Date: 20230417
  Serious: Yes (Hospitalization)
  Sender: FDA-Public Use
  Company Number: None

PATIENT
  Age: 75 Year
  Sex: Male

DRUGS (8)
  1. FUROSEMIDE [Suspect]
     Active Substance: FUROSEMIDE
     Indication: Hypertension
     Dosage: 40.0 MG EVERY 24 H
     Dates: start: 20220314, end: 20220712
  2. AMLODIPINE [Suspect]
     Active Substance: AMLODIPINE BESYLATE
     Indication: Hypertension
     Dosage: 5.0 MG EVERY 24 H
     Dates: start: 20210209, end: 20220712
  3. CANDESARTAN [Suspect]
     Active Substance: CANDESARTAN
     Indication: Hypertension
     Dosage: 16.0 MG EVERY 24 H
     Dates: start: 20210210, end: 20220712
  4. NITROGLYCERIN [Suspect]
     Active Substance: NITROGLYCERIN
     Indication: Hypertension
     Dosage: STRENGTH: 10 MG/24 H, 30 PATCHES, 1.0 PATCH EVERY 24 H
     Dates: start: 20220315, end: 20220712
  5. METFORMIN [Concomitant]
     Active Substance: METFORMIN HYDROCHLORIDE
     Indication: Diabetes mellitus
     Dosage: STRENGTH: 850 MG, 50 TABLETS, 850.0 MG EVERY 24 H
     Dates: start: 20210210
  6. SOLIFENACIN\TAMSULOSIN [Concomitant]
     Active Substance: SOLIFENACIN\TAMSULOSIN
     Indication: Benign prostatic hyperplasia
     Dosage: STRENGTH: 6 MG/0.4 MG, 30 TABLETS, 1.0 TAB EVERY 24 H
     Dates: start: 20210210
  7. ALLOPURINOL [Concomitant]
     Active Substance: ALLOPURINOL
     Indication: Product used for unknown indication
     Dosage: 300 MG, 30 TABLETS, 300.0 MG AT BREAKFAST
     Dates: start: 20210210
  8. CALCIUM CARBONATE\CHOLECALCIFEROL [Concomitant]
     Active Substance: CALCIUM CARBONATE\CHOLECALCIFEROL
     Indication: Hypovitaminosis
     Dosage: STRENGTH: 600 MG/2000 IU, 30 TABLETS, 1.0 TAB AT BREAKFAST
     Dates: start: 20210601

REACTIONS (1)
  - Syncope [Recovered/Resolved]

NARRATIVE: CASE EVENT DATE: 20220711
